FAERS Safety Report 17999474 (Version 2)
Quarter: 2020Q3

REPORT INFORMATION
  Report Type: Report from Study
  Country: CA (occurrence: CA)
  Receive Date: 20200709
  Receipt Date: 20200710
  Transmission Date: 20201103
  Serious: Yes (Death)
  Sender: FDA-Public Use
  Company Number: CA-ASTRAZENECA-2020SE85969

PATIENT
  Age: 26325 Day
  Sex: Male

DRUGS (2)
  1. TAGRISSO [Suspect]
     Active Substance: OSIMERTINIB
     Indication: NON-SMALL CELL LUNG CANCER
     Route: 048
     Dates: start: 20180130
  2. GIOTRIF (AFATINIB) [Concomitant]
     Dates: start: 20180101, end: 20180116

REACTIONS (1)
  - Death [Fatal]

NARRATIVE: CASE EVENT DATE: 20200704
